FAERS Safety Report 4954543-2 (Version None)
Quarter: 2006Q1

REPORT INFORMATION
  Report Type: 
  Country: None (occurrence: None)
  Receive Date: 20060322
  Receipt Date: 20060313
  Transmission Date: 20060701
  Serious: Yes (Hospitalization)
  Sender: FDA-Public Use
  Company Number: 2006VX000297

PATIENT
  Age: 57 Year
  Sex: Female
  Weight: 65 kg

DRUGS (2)
  1. INTERFERON ALFACON-L (INTERFERON ALFACON-L) [Suspect]
     Indication: HEPATITIS C
     Dosage: 9 UG;QD;SC
     Route: 058
     Dates: start: 20051021, end: 20060216
  2. RIBAVIRIN [Suspect]
     Indication: HEPATITIS C
     Dosage: 1000 MG;PO
     Route: 048
     Dates: start: 20051021, end: 20060216

REACTIONS (1)
  - RETINAL VEIN THROMBOSIS [None]
